FAERS Safety Report 5808089-X (Version None)
Quarter: 2008Q3

REPORT INFORMATION
  Report Type: 
  Country: None (occurrence: None)
  Receive Date: 20080711
  Receipt Date: 20080630
  Transmission Date: 20090109
  Serious: Yes (Other)
  Sender: FDA-Public Use
  Company Number: US-PFIZER INC-2008055143

PATIENT
  Sex: Female
  Weight: 59.4 kg

DRUGS (10)
  1. ZYVOX [Suspect]
     Indication: WOUND
     Dosage: DAILY DOSE:400MG
     Route: 048
     Dates: start: 20080601, end: 20080601
  2. CLINDAMYCIN HYDROCHLORIDE [Suspect]
     Indication: WOUND
  3. ALTACE [Concomitant]
  4. LEVOTHYROXINE SODIUM [Concomitant]
  5. DIGOXIN [Concomitant]
  6. WARFARIN SODIUM [Concomitant]
  7. NITROGLYCERIN [Concomitant]
  8. FOLTX [Concomitant]
  9. MULTI-VITAMINS [Concomitant]
  10. LORTAB [Concomitant]

REACTIONS (1)
  - STAPHYLOCOCCAL INFECTION [None]
